FAERS Safety Report 19303562 (Version 1)
Quarter: 2021Q2

REPORT INFORMATION
  Report Type: Spontaneous
  Country: JP (occurrence: JP)
  Receive Date: 20210525
  Receipt Date: 20210525
  Transmission Date: 20210717
  Serious: Yes (Hospitalization)
  Sender: FDA-Public Use
  Company Number: JP-BAYER-2021-144437

PATIENT
  Age: 79 Year
  Sex: Male

DRUGS (1)
  1. NUBEQA [Suspect]
     Active Substance: DAROLUTAMIDE
     Indication: ANTIANDROGEN THERAPY
     Dosage: 1200 MG, BID
     Dates: start: 20210426, end: 20210506

REACTIONS (6)
  - Renal impairment [Unknown]
  - Pyrexia [None]
  - Decreased appetite [Unknown]
  - Rash [Unknown]
  - Hepatic function abnormal [Unknown]
  - Off label use [None]
